FAERS Safety Report 22637643 (Version 3)
Quarter: 2025Q3

REPORT INFORMATION
  Report Type: Spontaneous
  Country: EU (occurrence: EU)
  Receive Date: 20230626
  Receipt Date: 20250710
  Transmission Date: 20251021
  Serious: Yes (Other)
  Sender: JAZZ
  Company Number: EU-JAZZ PHARMACEUTICALS-2023-DE-013423

PATIENT
  Age: 2 Year

DRUGS (1)
  1. CANNABIDIOL [Suspect]
     Active Substance: CANNABIDIOL
     Indication: Tuberous sclerosis complex
     Route: 048

REACTIONS (3)
  - Seizure [Unknown]
  - Diarrhoea [Unknown]
  - Appetite disorder [Unknown]
